FAERS Safety Report 10587044 (Version 2)
Quarter: 2014Q4

REPORT INFORMATION
  Report Type: Spontaneous
  Country: US (occurrence: US)
  Receive Date: 20141117
  Receipt Date: 20141217
  Transmission Date: 20150529
  Serious: Yes (Other)
  Sender: FDA-Public Use
  Company Number: US-JNJFOC-20141107964

PATIENT
  Age: 66 Year
  Sex: Female

DRUGS (25)
  1. ACCOLATE [Concomitant]
     Active Substance: ZAFIRLUKAST
     Indication: RESPIRATORY DISORDER
  2. VITAMIN B [Concomitant]
     Active Substance: VITAMIN B
  3. SENNA S [Concomitant]
     Active Substance: DOCUSATE SODIUM\SENNA LEAF
  4. SEREVENT DISKUS [Concomitant]
     Active Substance: SALMETEROL XINAFOATE
  5. VENTOLIN [Concomitant]
     Active Substance: ALBUTEROL SULFATE
  6. ZEASORB [Concomitant]
     Active Substance: MICONAZOLE NITRATE
  7. INVOKANA [Suspect]
     Active Substance: CANAGLIFLOZIN
     Indication: STEROID THERAPY
     Route: 048
     Dates: start: 20141107, end: 20141108
  8. MAGNESIUM OXIDE. [Concomitant]
     Active Substance: MAGNESIUM OXIDE
  9. ASPIRIN. [Concomitant]
     Active Substance: ASPIRIN
  10. MIRALAX [Concomitant]
     Active Substance: POLYETHYLENE GLYCOL 3350
  11. PREVACID [Concomitant]
     Active Substance: LANSOPRAZOLE
  12. VESICARE [Concomitant]
     Active Substance: SOLIFENACIN SUCCINATE
  13. ZYVOX [Concomitant]
     Active Substance: LINEZOLID
     Dates: end: 20141107
  14. REFRESH [Concomitant]
     Active Substance: UNSPECIFIED INGREDIENT
     Indication: DRY EYE
     Route: 047
  15. LASIX [Concomitant]
     Active Substance: FUROSEMIDE
     Indication: OEDEMA
     Dosage: ONCE OR TWICE DAILY
  16. SPIRONOLACTONE. [Concomitant]
     Active Substance: SPIRONOLACTONE
     Indication: OEDEMA
  17. BACLOFEN. [Concomitant]
     Active Substance: BACLOFEN
  18. ACCOLATE [Concomitant]
     Active Substance: ZAFIRLUKAST
     Indication: CHRONIC OBSTRUCTIVE PULMONARY DISEASE
  19. NYSTOP [Concomitant]
     Active Substance: NYSTATIN
     Route: 061
  20. BENICAR [Concomitant]
     Active Substance: OLMESARTAN MEDOXOMIL
  21. FLOVENT [Concomitant]
     Active Substance: FLUTICASONE PROPIONATE
  22. KETOCONAZOLE. [Concomitant]
     Active Substance: KETOCONAZOLE
  23. INVOKANA [Suspect]
     Active Substance: CANAGLIFLOZIN
     Indication: TYPE 2 DIABETES MELLITUS
     Route: 048
     Dates: start: 20141107, end: 20141108
  24. OYSTER SHELL CALCIUM WITH VITAMIN D [Concomitant]
     Active Substance: CALCIUM\CHOLECALCIFEROL
  25. DUONEB [Concomitant]
     Active Substance: ALBUTEROL SULFATE\IPRATROPIUM BROMIDE

REACTIONS (4)
  - Anxiety [Unknown]
  - Blood glucose increased [Unknown]
  - Tardive dyskinesia [Unknown]
  - Insomnia [Recovered/Resolved]

NARRATIVE: CASE EVENT DATE: 20141107
